FAERS Safety Report 10306735 (Version 2)
Quarter: 2014Q1

REPORT INFORMATION
  Report Type: Spontaneous
  Country: US (occurrence: None)
  Receive Date: 20120817
  Receipt Date: 20130815
  Transmission Date: 20141002
  Serious: Yes (Other)
  Sender: FDA-Public Use
  Company Number: ADR-2012-00900

PATIENT
  Sex: Female

DRUGS (2)
  1. LIORESAL [Suspect]
     Indication: MUSCLE SPASTICITY
  2. LIORESAL [Suspect]
     Indication: CEREBRAL PALSY

REACTIONS (17)
  - Therapeutic response decreased [None]
  - Crying [None]
  - Musculoskeletal stiffness [None]
  - Dehydration [None]
  - Pain [None]
  - Abnormal behaviour [None]
  - Mood swings [None]
  - Convulsion [None]
  - Hypertonia [None]
  - Hyperhidrosis [None]
  - Drug withdrawal syndrome [None]
  - Wound [None]
  - Injection site pustule [None]
  - Influenza [None]
  - Implant site irritation [None]
  - Implant site rash [None]
  - Implant site infection [None]
